FAERS Safety Report 5045406-5 (Version None)
Quarter: 2006Q3

REPORT INFORMATION
  Report Type: 
  Country: None (occurrence: None)
  Receive Date: 20060707
  Receipt Date: 20060619
  Transmission Date: 20061208
  Serious: Yes (Hospitalization)
  Sender: FDA-Public Use
  Company Number: ES-MERCK-0606ESP00011

PATIENT
  Age: 80 Year
  Sex: Female

DRUGS (3)
  1. SINGULAIR [Suspect]
     Route: 048
     Dates: start: 20060401, end: 20060601
  2. NONSTEROIDAL ANTI-INFLAMMATORY DRUG (UNSPECIFIED) [Suspect]
     Route: 065
  3. CORTISONE [Suspect]
     Indication: LUNG DISORDER
     Route: 065

REACTIONS (2)
  - ANAEMIA [None]
  - ULCER HAEMORRHAGE [None]
